FAERS Safety Report 4580292-9 (Version None)
Quarter: 2005Q1

REPORT INFORMATION
  Report Type: 
  Country: None (occurrence: None)
  Receive Date: 20050127
  Receipt Date: 20041130
  Transmission Date: 20050727
  Serious: No
  Sender: FDA-Public Use
  Company Number: USA040566541

PATIENT
  Age: 34 Year
  Sex: Female
  Weight: 61 kg

DRUGS (3)
  1. STRATTERA [Suspect]
     Indication: ATTENTION DEFICIT/HYPERACTIVITY DISORDER
     Dosage: 40 MG/2 DAY
     Dates: start: 20040426
  2. FISH OIL [Concomitant]
  3. MULTI-VITAMIN [Concomitant]

REACTIONS (17)
  - ANXIETY [None]
  - BRADYPHRENIA [None]
  - CHEST PAIN [None]
  - CRYING [None]
  - DRUG INEFFECTIVE [None]
  - DYSGEUSIA [None]
  - DYSPHEMIA [None]
  - DYSPNOEA [None]
  - EMOTIONAL DISORDER [None]
  - FATIGUE [None]
  - HEADACHE [None]
  - HEART RATE IRREGULAR [None]
  - IRRITABILITY [None]
  - MEMORY IMPAIRMENT [None]
  - MENSTRUAL DISORDER [None]
  - SOCIAL PHOBIA [None]
  - THIRST [None]
